FAERS Safety Report 10203836 (Version 2)
Quarter: 2014Q3

REPORT INFORMATION
  Report Type: Spontaneous
  Country: US (occurrence: None)
  Receive Date: 20140523
  Receipt Date: 20140709
  Transmission Date: 20150326
  Serious: Yes (Hospitalization)
  Sender: FDA-Public Use
  Company Number: UNT-2014-000517

PATIENT
  Age: 47 Year
  Sex: Female
  Weight: 47.6 kg

DRUGS (3)
  1. ADCIRCA (TADALAFIL) UNKNOWN [Concomitant]
  2. TYVASO [Suspect]
     Active Substance: TREPROSTINIL
     Indication: COR PULMONALE CHRONIC
     Dosage: 18-54 MICROGRAMS, QID, INHALATION
     Route: 055
     Dates: start: 20140303
  3. LETAIRIS (AMBRISENTAN) UNKNOWN [Concomitant]

REACTIONS (3)
  - Fluid overload [None]
  - Pulmonary arterial hypertension [None]
  - Disease progression [None]

NARRATIVE: CASE EVENT DATE: 20140508
